FAERS Safety Report 4914134-6 (Version None)
Quarter: 2006Q1

REPORT INFORMATION
  Report Type: 
  Country: None (occurrence: None)
  Receive Date: 20060210
  Receipt Date: 20060201
  Transmission Date: 20060701
  Serious: Yes (Other)
  Sender: FDA-Public Use
  Company Number: 2005118573

PATIENT
  Age: 79 Year
  Sex: Female

DRUGS (2)
  1. ARTHROTEC [Suspect]
     Indication: ILL-DEFINED DISORDER
  2. DAYPRO [Suspect]
     Indication: ILL-DEFINED DISORDER

REACTIONS (3)
  - ABDOMINAL PAIN UPPER [None]
  - CHEST PAIN [None]
  - THROAT TIGHTNESS [None]
